FAERS Safety Report 24324768 (Version 1)
Quarter: 2024Q3

REPORT INFORMATION
  Report Type: Report from Study
  Country: US (occurrence: US)
  Receive Date: 20240916
  Receipt Date: 20240916
  Transmission Date: 20241017
  Serious: Yes (Other)
  Sender: BAYER
  Company Number: US-BAYER-2024A113240

PATIENT
  Age: 56 Year
  Sex: Female

DRUGS (1)
  1. INTERFERON BETA-1B [Suspect]
     Active Substance: INTERFERON BETA-1B
     Indication: Multiple sclerosis
     Dosage: 1 ML, QOD
     Route: 058
     Dates: start: 202405

REACTIONS (17)
  - Depressed level of consciousness [None]
  - Back pain [None]
  - Peripheral swelling [None]
  - Fatigue [None]
  - Musculoskeletal stiffness [None]
  - Pain [None]
  - Paraesthesia [None]
  - Alopecia [None]
  - Blister [None]
  - Feeling abnormal [None]
  - Loss of personal independence in daily activities [None]
  - Impaired work ability [None]
  - Disturbance in attention [None]
  - Pain [None]
  - Mood altered [None]
  - Gait inability [None]
  - Insomnia [None]
